FAERS Safety Report 23075239 (Version 2)
Quarter: 2023Q4

REPORT INFORMATION
  Report Type: Spontaneous
  Country: US (occurrence: US)
  Receive Date: 20231017
  Receipt Date: 20231108
  Transmission Date: 20240110
  Serious: No
  Sender: FDA-Public Use
  Company Number: US-SA-SAC20231010000218

PATIENT
  Sex: Male
  Weight: 15.42 kg

DRUGS (1)
  1. DUPIXENT [Suspect]
     Active Substance: DUPILUMAB
     Dosage: UNK, STRENGTH: 200 MG
     Route: 058

REACTIONS (7)
  - Periorbital disorder [Unknown]
  - Rash macular [Unknown]
  - Dry skin [Unknown]
  - Condition aggravated [Unknown]
  - Skin burning sensation [Unknown]
  - Skin exfoliation [Unknown]
  - Erythema [Unknown]
